FAERS Safety Report 8418369-X (Version None)
Quarter: 2012Q2

REPORT INFORMATION
  Report Type: 
  Country: None (occurrence: None)
  Receive Date: 20120607
  Receipt Date: 20120605
  Transmission Date: 20120825
  Serious: Yes (Other)
  Sender: FDA-Public Use
  Company Number: US-PFIZER INC-2012135335

PATIENT
  Sex: Female
  Weight: 81.633 kg

DRUGS (2)
  1. LYRICA [Concomitant]
     Indication: FIBROMYALGIA
     Dosage: UNK
  2. ZOLOFT [Suspect]
     Indication: DEPRESSION
     Dosage: 50 MG, 1X/DAY
     Route: 048
     Dates: start: 20070101, end: 20120401

REACTIONS (4)
  - DEPRESSION [None]
  - NASOPHARYNGITIS [None]
  - PHARYNGEAL DISORDER [None]
  - LOWER RESPIRATORY TRACT INFECTION [None]
